FAERS Safety Report 16568990 (Version 1)
Quarter: 2019Q3

REPORT INFORMATION
  Report Type: Spontaneous
  Country: US (occurrence: US)
  Receive Date: 20190531
  Receipt Date: 20190531
  Transmission Date: 20191004
  Serious: Yes (Other)
  Sender: FDA-Public Use
  Company Number: None

PATIENT
  Age: 63 Year
  Sex: Male
  Weight: 80 kg

DRUGS (2)
  1. WARFARIN 5MG [Suspect]
     Active Substance: WARFARIN
     Indication: CARDIAC VALVE PROSTHESIS USER
     Route: 048
     Dates: start: 20130304
  2. TOPIRAMATE 50MG [Suspect]
     Active Substance: TOPIRAMATE
     Indication: TREMOR
     Route: 048

REACTIONS (2)
  - Anticoagulation drug level below therapeutic [None]
  - Drug interaction [None]

NARRATIVE: CASE EVENT DATE: 20190318
